FAERS Safety Report 6977399-5 (Version None)
Quarter: 2010Q3

REPORT INFORMATION
  Report Type: 
  Country: None (occurrence: None)
  Receive Date: 20100910
  Receipt Date: 20100907
  Transmission Date: 20110219
  Serious: Yes (Death)
  Sender: FDA-Public Use
  Company Number: US-ABBOTT-10P-163-0668565-00

PATIENT
  Sex: Male
  Weight: 78.542 kg

DRUGS (7)
  1. ZEMPLAR [Suspect]
     Indication: RENAL FAILURE
     Route: 048
     Dates: start: 20090101, end: 20100409
  2. ADVAIR DISKUS 100/50 [Concomitant]
     Indication: CHRONIC OBSTRUCTIVE PULMONARY DISEASE
     Dosage: 2 IN 1 DAYS, AS NEEDED
  3. INSULIN [Concomitant]
     Indication: DIABETES MELLITUS
     Dosage: DAILY
     Route: 058
  4. LASIX [Concomitant]
     Indication: DIURETIC THERAPY
  5. DEMADEX [Concomitant]
     Indication: DIURETIC THERAPY
  6. SUPPLEMENTS [Concomitant]
     Indication: PRODUCT USED FOR UNKNOWN INDICATION
  7. IRON [Concomitant]
     Indication: ANAEMIA

REACTIONS (7)
  - CARDIAC FAILURE [None]
  - CARDIO-RESPIRATORY ARREST [None]
  - FALL [None]
  - FLUID RETENTION [None]
  - INSOMNIA [None]
  - PAIN [None]
  - RENAL FAILURE [None]
